FAERS Safety Report 4963251-3 (Version None)
Quarter: 2006Q2

REPORT INFORMATION
  Report Type: 
  Country: None (occurrence: None)
  Receive Date: 20060405
  Receipt Date: 20050427
  Transmission Date: 20061013
  Serious: Yes (Hospitalization)
  Sender: FDA-Public Use
  Company Number: US-MERCK-0504USA04745

PATIENT
  Age: 52 Year
  Sex: Male
  Weight: 118 kg

DRUGS (1)
  1. VIOXX [Suspect]
     Indication: ARTHRALGIA
     Route: 048
     Dates: start: 20020101, end: 20020711

REACTIONS (2)
  - KNEE ARTHROPLASTY [None]
  - MYOCARDIAL INFARCTION [None]
